FAERS Safety Report 12132341 (Version 1)
Quarter: 2016Q1

REPORT INFORMATION
  Report Type: Spontaneous
  Country: US (occurrence: None)
  Receive Date: 20160229
  Receipt Date: 20160229
  Transmission Date: 20160526
  Serious: Yes (Other)
  Sender: FDA-Public Use
  Company Number: None

PATIENT
  Age: 66 Year
  Sex: Male

DRUGS (13)
  1. SILDENAFIL. [Concomitant]
     Active Substance: SILDENAFIL
  2. FUROSEMIDE. [Concomitant]
     Active Substance: FUROSEMIDE
  3. LETAIRIS [Suspect]
     Active Substance: AMBRISENTAN
     Indication: PULMONARY ARTERIAL HYPERTENSION
     Route: 048
     Dates: start: 20151214
  4. ALBUTEROL. [Concomitant]
     Active Substance: ALBUTEROL
  5. ZOLPIDEM [Concomitant]
     Active Substance: ZOLPIDEM\ZOLPIDEM TARTRATE
  6. SERTRALINE [Concomitant]
     Active Substance: SERTRALINE HYDROCHLORIDE
  7. QVAR [Concomitant]
     Active Substance: BECLOMETHASONE DIPROPIONATE
  8. MIRTAZAPINE. [Concomitant]
     Active Substance: MIRTAZAPINE
  9. WARFARIN [Concomitant]
     Active Substance: WARFARIN
  10. IPRATROPIUM [Concomitant]
     Active Substance: IPRATROPIUM
  11. PREDNISONE. [Concomitant]
     Active Substance: PREDNISONE
  12. LORAZEPAM. [Concomitant]
     Active Substance: LORAZEPAM
  13. LISINOPRIL. [Concomitant]
     Active Substance: LISINOPRIL

REACTIONS (8)
  - Burning sensation [None]
  - Headache [None]
  - Ocular discomfort [None]
  - Erythema [None]
  - Swelling [None]
  - Oxygen saturation decreased [None]
  - Ocular hyperaemia [None]
  - Dyspnoea [None]

NARRATIVE: CASE EVENT DATE: 20160128
